FAERS Safety Report 5036993-1 (Version None)
Quarter: 2006Q2

REPORT INFORMATION
  Report Type: 
  Country: None (occurrence: None)
  Receive Date: 20060601
  Receipt Date: 20060307
  Transmission Date: 20061013
  Serious: Yes (Life-Threatening, Hospitalization)
  Sender: FDA-Public Use
  Company Number: US200602001038

PATIENT
  Age: 45 Year
  Sex: Female

DRUGS (10)
  1. CYMBALTA [Suspect]
     Indication: DEPRESSION
     Dosage: SEE IMAGE
     Dates: start: 20050426, end: 20060101
  2. . [Concomitant]
  3. OXYCONTIN [Concomitant]
  4. VALIUM /NET/ (DIAZEPAM) [Concomitant]
  5. LORAZEPAM [Concomitant]
  6. FIORINAL [Concomitant]
  7. ESTRADIOL [Concomitant]
  8. SYNTHROID [Concomitant]
  9. DYAZIDE /CAN/ (HYDROCHLOROTHIAZIDE, TRIAMTERENE) [Concomitant]
  10. DEXIDRINE (DEXAMFETAMINE SULFATE) [Concomitant]

REACTIONS (1)
  - SUICIDE ATTEMPT [None]
